FAERS Safety Report 5318238-8 (Version None)
Quarter: 2007Q2

REPORT INFORMATION
  Report Type: 
  Country: None (occurrence: None)
  Receive Date: 20070507
  Receipt Date: 20070425
  Transmission Date: 20071010
  Serious: Yes (Life-Threatening)
  Sender: FDA-Public Use
  Company Number: FR-PFIZER INC-2007033735

PATIENT
  Sex: Male

DRUGS (12)
  1. FARMORUBICIN RD [Suspect]
     Indication: LYMPHOMA
     Route: 042
  2. CORTANCYL [Suspect]
     Indication: LYMPHOMA
     Route: 048
     Dates: start: 20070312, end: 20070316
  3. ENDOXAN [Suspect]
     Indication: LYMPHOMA
     Route: 042
  4. ELDISINE [Suspect]
     Indication: LYMPHOMA
     Route: 042
  5. METHOTREXATE [Suspect]
     Indication: LYMPHOMA
     Route: 037
     Dates: start: 20070313, end: 20070313
  6. MABTHERA [Suspect]
     Indication: LYMPHOMA
     Route: 042
  7. METHYLPREDNISOLONE 16MG TAB [Concomitant]
  8. PYRAZINAMIDE [Concomitant]
  9. ETHAMBUTOL HYDROCHLORIDE [Concomitant]
  10. RIFABUTIN [Concomitant]
  11. COTRIM [Concomitant]
  12. FOLIC ACID [Concomitant]

REACTIONS (2)
  - CEREBRAL HAEMORRHAGE [None]
  - STATUS EPILEPTICUS [None]
